FAERS Safety Report 8734162 (Version 3)
Quarter: 2012Q4

REPORT INFORMATION
  Report Type: 
  Country: US (occurrence: US)
  Receive Date: 20120821
  Receipt Date: 20120928
  Transmission Date: 20130627
  Serious: Yes (Other)
  Sender: FDA-Public Use
  Company Number: US-PFIZER INC-2012200015

PATIENT
  Age: 63 Year
  Sex: Female
  Weight: 71.66 kg

DRUGS (2)
  1. XALATAN [Suspect]
     Indication: GLAUCOMA
     Dosage: one drop in each eye, 1x/day
     Route: 047
  2. DEPAKOTE [Concomitant]
     Indication: BIPOLAR DISORDER
     Dosage: UNK, 2x/day

REACTIONS (3)
  - Intervertebral disc protrusion [Unknown]
  - Anaesthetic complication [Unknown]
  - Pain [Unknown]
